FAERS Safety Report 10204467 (Version 1)
Quarter: 2014Q2

REPORT INFORMATION
  Report Type: Spontaneous
  Country: JP (occurrence: JP)
  Receive Date: 20140529
  Receipt Date: 20140529
  Transmission Date: 20141212
  Serious: Yes (Hospitalization)
  Sender: FDA-Public Use
  Company Number: JP-WATSON-2014-11510

PATIENT
  Age: 54 Year
  Sex: Male

DRUGS (4)
  1. LAMOTRIGINE (UNKNOWN) [Suspect]
     Indication: BIPOLAR I DISORDER
     Dosage: 200 MG, DAILY
     Route: 065
  2. ARIPIPRAZOLE (UNKNOWN) [Suspect]
     Indication: BIPOLAR I DISORDER
     Dosage: 6 MG, DAILY
     Route: 065
  3. LITHIUM [Concomitant]
     Indication: BIPOLAR I DISORDER
     Dosage: 400 MG, DAILY
     Route: 065
  4. SERTRALINE [Concomitant]
     Indication: DEPRESSIVE SYMPTOM
     Dosage: 25 MG, DAILY
     Route: 065

REACTIONS (2)
  - Neuroleptic malignant syndrome [Recovered/Resolved]
  - Tremor [Recovered/Resolved]
